FAERS Safety Report 19447020 (Version 1)
Quarter: 2021Q2

REPORT INFORMATION
  Report Type: Spontaneous
  Country: US (occurrence: US)
  Receive Date: 20210621
  Receipt Date: 20210621
  Transmission Date: 20210717
  Serious: No
  Sender: FDA-Public Use
  Company Number: None

PATIENT
  Age: 30 Year
  Sex: Female
  Weight: 141.75 kg

DRUGS (1)
  1. ARAVA [Suspect]
     Active Substance: LEFLUNOMIDE
     Indication: ARTHRITIS
     Dosage: ?          QUANTITY:1 CAPSULE(S);?
     Route: 048

REACTIONS (5)
  - Back pain [None]
  - Hypoaesthesia oral [None]
  - Vertigo [None]
  - Nausea [None]
  - Hypoaesthesia [None]

NARRATIVE: CASE EVENT DATE: 20210618
